FAERS Safety Report 6509160-X (Version None)
Quarter: 2009Q4

REPORT INFORMATION
  Report Type: 
  Country: None (occurrence: None)
  Receive Date: 20091221
  Receipt Date: 20091214
  Transmission Date: 20100525
  Serious: Yes (Hospitalization, Other)
  Sender: FDA-Public Use
  Company Number: BR-ABBOTT-09P-020-0614610-00

PATIENT
  Sex: Female
  Weight: 69 kg

DRUGS (7)
  1. HUMIRA [Suspect]
     Indication: RHEUMATOID ARTHRITIS
     Route: 058
     Dates: start: 20091122
  2. ENALAPRIL [Concomitant]
     Indication: HYPERTENSION
     Route: 048
  3. HYDROCHLOROTHIAZIDE [Concomitant]
     Indication: HYPERTENSION
     Route: 048
  4. AMITRIPTYLINE [Concomitant]
     Indication: SEDATIVE THERAPY
     Route: 048
     Dates: start: 20091130
  5. ALPRAZOLAM [Concomitant]
     Indication: SEDATIVE THERAPY
     Route: 048
     Dates: start: 20091130
  6. METHOTREXATE [Concomitant]
     Indication: PAIN
     Route: 048
  7. TENOXICAM / RANITIDINE / CHLOROQUINE / CARISOPRODOL [Concomitant]
     Indication: PAIN
     Dosage: TENOXICAM 20MG/ RANITIDINE 300MG/ CHLOROQUINE 200MG/ CARISOPRODOL 200MG
     Route: 048

REACTIONS (3)
  - BLOOD PRESSURE INCREASED [None]
  - HEADACHE [None]
  - VISION BLURRED [None]
